FAERS Safety Report 7543741-X (Version None)
Quarter: 2011Q2

REPORT INFORMATION
  Report Type: 
  Country: None (occurrence: None)
  Receive Date: 20110613
  Receipt Date: 20040625
  Transmission Date: 20111010
  Serious: Yes (Life-Threatening, Hospitalization)
  Sender: FDA-Public Use
  Company Number: PHHO2004JP08302

PATIENT
  Sex: Male

DRUGS (6)
  1. ADALAT CC [Concomitant]
     Indication: HYPERTENSION
     Dosage: 40 MG, DAILY
     Route: 048
     Dates: start: 20030304, end: 20030310
  2. ANTUP [Concomitant]
     Indication: ANGINA PECTORIS
     Dosage: UNK
  3. DIOVAN [Suspect]
     Indication: HYPERTENSION
     Dosage: 80 MG,DAILY
     Route: 048
     Dates: start: 20030304
  4. NITROL [Concomitant]
     Indication: ANGINA PECTORIS
     Dosage: 20 MG, DALILY
     Route: 048
     Dates: start: 19970523
  5. BUFFERIN [Concomitant]
     Indication: CEREBRAL INFARCTION
     Dosage: 81 MG DAILY
     Route: 048
     Dates: start: 19970523
  6. SIGMART [Concomitant]
     Indication: ANGINA PECTORIS
     Dosage: UNK

REACTIONS (2)
  - MYOCARDIAL INFARCTION [None]
  - ANGINA PECTORIS [None]
